FAERS Safety Report 6064365-X (Version None)
Quarter: 2009Q1

REPORT INFORMATION
  Report Type: 
  Country: None (occurrence: None)
  Receive Date: 20090203
  Receipt Date: 20090203
  Transmission Date: 20090719
  Serious: Yes (Other)
  Sender: FDA-Public Use
  Company Number: None

PATIENT
  Sex: Male
  Weight: 92.9874 kg

DRUGS (2)
  1. REMICADE [Suspect]
     Indication: CROHN'S DISEASE
     Dosage: 5MG/KG Q 8 WEEKS IV
     Route: 042
     Dates: start: 20060110, end: 20070711
  2. AZATHIOPRINE [Concomitant]

REACTIONS (1)
  - ACUTE MYELOID LEUKAEMIA [None]
